FAERS Safety Report 5998855-2 (Version None)
Quarter: 2008Q4

REPORT INFORMATION
  Report Type: 
  Country: None (occurrence: None)
  Receive Date: 20081213
  Receipt Date: 20080723
  Transmission Date: 20090506
  Serious: No
  Sender: FDA-Public Use
  Company Number: US-AMGEN-KDL295370

PATIENT
  Sex: Female
  Weight: 132.1 kg

DRUGS (7)
  1. ENBREL [Suspect]
     Indication: RHEUMATOID ARTHRITIS
     Route: 058
     Dates: start: 20080218
  2. METHOTREXATE [Concomitant]
     Route: 048
  3. FOLIC ACID [Concomitant]
  4. PLAQUENIL [Concomitant]
  5. CELEBREX [Concomitant]
  6. PREDNISONE TAB [Concomitant]
  7. BENICAR [Concomitant]

REACTIONS (8)
  - BRONCHITIS [None]
  - COUGH [None]
  - INJECTION SITE HAEMORRHAGE [None]
  - INJECTION SITE PAIN [None]
  - JOINT EFFUSION [None]
  - OROPHARYNGEAL PAIN [None]
  - SINUS CONGESTION [None]
  - THERAPEUTIC RESPONSE DECREASED [None]
